FAERS Safety Report 7597508-7 (Version None)
Quarter: 2011Q3

REPORT INFORMATION
  Report Type: 
  Country: None (occurrence: None)
  Receive Date: 20110708
  Receipt Date: 20110706
  Transmission Date: 20111222
  Serious: Yes (Death)
  Sender: FDA-Public Use
  Company Number: PHHY2011US60340

PATIENT
  Sex: Female

DRUGS (2)
  1. RECLAST [Suspect]
     Dosage: UNK
     Route: 042
     Dates: start: 20090818
  2. RECLAST [Suspect]
     Dosage: UNK
     Route: 042
     Dates: start: 20100907

REACTIONS (1)
  - DEATH [None]
